FAERS Safety Report 5322676-7 (Version None)
Quarter: 2007Q2

REPORT INFORMATION
  Report Type: 
  Country: None (occurrence: None)
  Receive Date: 20070511
  Receipt Date: 20070501
  Transmission Date: 20071010
  Serious: Yes (Other)
  Sender: FDA-Public Use
  Company Number: US-PFIZER INC-2007036039

PATIENT
  Sex: Male
  Weight: 84.09 kg

DRUGS (2)
  1. CHANTIX [Suspect]
     Indication: SMOKING CESSATION THERAPY
  2. ARTICAINE [Interacting]
     Indication: LOCAL ANAESTHESIA
     Route: 048

REACTIONS (3)
  - DENTAL DISCOMFORT [None]
  - DRUG INTERACTION [None]
  - TOOTH REPAIR [None]
